FAERS Safety Report 14977163 (Version 1)
Quarter: 2018Q2

REPORT INFORMATION
  Report Type: Spontaneous
  Country: NL (occurrence: NL)
  Receive Date: 20180606
  Receipt Date: 20180606
  Transmission Date: 20180711
  Serious: Yes (Hospitalization)
  Sender: FDA-Public Use
  Company Number: NL-SUN PHARMACEUTICAL INDUSTRIES LTD-2017R1-144670

PATIENT
  Age: 66 Year
  Sex: Female

DRUGS (4)
  1. VALPROIC ACID. [Suspect]
     Active Substance: VALPROIC ACID
     Indication: PRODUCT USED FOR UNKNOWN INDICATION
     Dosage: UNK
     Route: 065
  2. LITHIUM. [Suspect]
     Active Substance: LITHIUM
     Indication: PRODUCT USED FOR UNKNOWN INDICATION
     Dosage: UNK
     Route: 065
  3. CYCLOPHOSPHAMIDE. [Suspect]
     Active Substance: CYCLOPHOSPHAMIDE
     Indication: PRODUCT USED FOR UNKNOWN INDICATION
     Route: 065
  4. CITALOPRAM [Concomitant]
     Active Substance: CITALOPRAM HYDROBROMIDE
     Indication: PRODUCT USED FOR UNKNOWN INDICATION
     Dosage: UNK
     Route: 065

REACTIONS (15)
  - Proteinuria [Unknown]
  - Infection [Unknown]
  - Drug withdrawal syndrome [Unknown]
  - Delirium [Recovered/Resolved]
  - Urinary retention [Unknown]
  - Toxicity to various agents [Unknown]
  - Somnolence [Unknown]
  - Pancytopenia [Unknown]
  - Cognitive disorder [Recovered/Resolved]
  - Disorientation [Unknown]
  - Hypoalbuminaemia [Unknown]
  - Seizure [Recovered/Resolved]
  - Drug level increased [Unknown]
  - Toxic encephalopathy [Unknown]
  - Hypotension [Unknown]
